FAERS Safety Report 11541393 (Version 9)
Quarter: 2017Q1

REPORT INFORMATION
  Report Type: Report from Study
  Country: US (occurrence: US)
  Receive Date: 20150923
  Receipt Date: 20170130
  Transmission Date: 20170428
  Serious: Yes (Life-Threatening, Hospitalization)
  Sender: FDA-Public Use
  Company Number: PHEH2015US018215

PATIENT
  Age: 64 Year
  Sex: Female

DRUGS (5)
  1. COSENTYX [Suspect]
     Active Substance: SECUKINUMAB
     Indication: PSORIASIS
     Dosage: 300 MG, QW (FOR 5 WEEKS)
     Route: 058
     Dates: start: 20150908
  2. OMEPRAZOLE. [Concomitant]
     Active Substance: OMEPRAZOLE
     Indication: PSORIASIS
     Dosage: 20 MG, UNK
     Route: 048
     Dates: start: 2008
  3. COSENTYX [Suspect]
     Active Substance: SECUKINUMAB
     Dosage: 300 MG, QMO
     Route: 058
  4. MTX [Concomitant]
     Active Substance: METHOTREXATE SODIUM
     Indication: PSORIASIS
     Dosage: 15 MG, QW
     Route: 048
     Dates: start: 2008
  5. LORAZEPAM. [Concomitant]
     Active Substance: LORAZEPAM
     Indication: PRODUCT USED FOR UNKNOWN INDICATION
     Dosage: 5 MG, UNK
     Route: 065

REACTIONS (21)
  - Swelling face [Unknown]
  - Fall [Unknown]
  - Erythema [Unknown]
  - Skin tightness [Unknown]
  - Lip swelling [Unknown]
  - Food allergy [Unknown]
  - Psoriasis [Unknown]
  - Dyspnoea [Unknown]
  - Drug ineffective [Unknown]
  - Speech disorder [Unknown]
  - Injection site urticaria [Recovered/Resolved]
  - Drug hypersensitivity [Unknown]
  - Peripheral swelling [Unknown]
  - Injection site vesicles [Unknown]
  - Limb injury [Unknown]
  - Hypersensitivity [Recovered/Resolved]
  - Swollen tongue [Unknown]
  - Injection site rash [Unknown]
  - Depression [Unknown]
  - Gait disturbance [Unknown]
  - Injection site haemorrhage [Unknown]

NARRATIVE: CASE EVENT DATE: 20151103
